FAERS Safety Report 9096067 (Version 1)
Quarter: 2013Q1

REPORT INFORMATION
  Report Type: Report from Study
  Country: UG (occurrence: UG)
  Receive Date: 20130207
  Receipt Date: 20130207
  Transmission Date: 20140127
  Serious: Yes (Other)
  Sender: FDA-Public Use
  Company Number: UG-GILEAD-2012-0066037

PATIENT
  Sex: Female

DRUGS (4)
  1. EMTRICITABINE/TENOFOVIR DISOPROXIL FUMARATE [Suspect]
     Indication: PROPHYLAXIS AGAINST HIV INFECTION
     Dosage: UNK
     Dates: start: 20101115, end: 20120917
  2. DIPHENHYDRAMINE [Concomitant]
  3. SODIUM ACETATE [Concomitant]
     Dosage: UNK
     Dates: start: 20120917, end: 20120923
  4. AMMONIUM CHLORIDE [Concomitant]

REACTIONS (1)
  - Abortion spontaneous [Recovered/Resolved]
